FAERS Safety Report 6436514-2 (Version None)
Quarter: 2009Q4

REPORT INFORMATION
  Report Type: 
  Country: None (occurrence: None)
  Receive Date: 20091111
  Receipt Date: 20091105
  Transmission Date: 20100525
  Serious: Yes (Hospitalization)
  Sender: FDA-Public Use
  Company Number: US-GENENTECH-284385

PATIENT
  Age: 56 Year
  Sex: Female
  Weight: 38 kg

DRUGS (4)
  1. BLINDED BEVACIZUMAB [Suspect]
     Indication: OVARIAN CANCER
     Dosage: 15 MG/KG, Q21D
     Route: 042
     Dates: end: 20090520
  2. BLINDED PLACEBO [Suspect]
     Indication: OVARIAN CANCER
     Dosage: 15 MG/KG, Q21D
     Route: 042
     Dates: end: 20090520
  3. PACLITAXEL [Concomitant]
     Indication: OVARIAN CANCER
     Dosage: 175 MG/M2, Q21D
     Route: 042
     Dates: start: 20090323, end: 20090520
  4. CARBOPLATIN [Concomitant]
     Indication: OVARIAN CANCER
     Dosage: 6 AUC, Q21D
     Route: 042
     Dates: start: 20090323, end: 20090520

REACTIONS (1)
  - COLITIS ISCHAEMIC [None]
